FAERS Safety Report 6699480-0 (Version None)
Quarter: 2010Q2

REPORT INFORMATION
  Report Type: 
  Country: None (occurrence: None)
  Receive Date: 20100426
  Receipt Date: 20100413
  Transmission Date: 20101027
  Serious: Yes (Other)
  Sender: FDA-Public Use
  Company Number: FR-1181550

PATIENT
  Sex: Female

DRUGS (1)
  1. AZOPT         (BRINZOLAMIDE)  SUSPENSION [Suspect]
     Route: 047

REACTIONS (2)
  - HEPATIC PAIN [None]
  - YELLOW SKIN [None]
